FAERS Safety Report 21070329 (Version 1)
Quarter: 2022Q3

REPORT INFORMATION
  Report Type: Spontaneous
  Country: US (occurrence: US)
  Receive Date: 20220712
  Receipt Date: 20220712
  Transmission Date: 20221027
  Serious: Yes (Other)
  Sender: FDA-Public Use
  Company Number: US-SA-SAC20220707001153

PATIENT
  Sex: Male

DRUGS (2)
  1. ZANTAC [Suspect]
     Active Substance: RANITIDINE HYDROCHLORIDE
     Indication: Dyspepsia
     Dosage: 75MG PRN
     Route: 065
     Dates: start: 19901201
  2. ZANTAC [Suspect]
     Active Substance: RANITIDINE HYDROCHLORIDE
     Dosage: 150MG PRN
     Route: 065
     Dates: end: 20121201

REACTIONS (3)
  - Gastrointestinal carcinoma [Unknown]
  - Colorectal cancer [Unknown]
  - Oesophageal carcinoma [Unknown]

NARRATIVE: CASE EVENT DATE: 20070101
